FAERS Safety Report 18956322 (Version 1)
Quarter: 2021Q1

REPORT INFORMATION
  Report Type: Spontaneous
  Country: CN (occurrence: CN)
  Receive Date: 20210301
  Receipt Date: 20210301
  Transmission Date: 20210420
  Serious: Yes (Other)
  Sender: FDA-Public Use
  Company Number: CN-BAXTER-2021BAX003778

PATIENT
  Age: 67 Year
  Sex: Female
  Weight: 70 kg

DRUGS (6)
  1. ENDOXAN [Suspect]
     Active Substance: CYCLOPHOSPHAMIDE
     Indication: BREAST CANCER
     Dosage: TARGETED COMBINATION CHEMOTHERAPY; CYCLOPHOSPHAMIDE 1100 MG+0.9% SODIUM CHLORIDE 100 ML; DAY1, Q21D
     Route: 041
     Dates: start: 20210205, end: 20210205
  2. 0.9% SODIUM CHLORIDE INJECTION [Suspect]
     Active Substance: SODIUM CHLORIDE
     Dosage: TARGETED COMBINATION CHEMOTHERAPY; TRASTUZUMAB 600MG +0.9% SODIUM CHLORIDE 250 ML; DAY 1, Q21D
     Route: 041
     Dates: start: 20210205, end: 20210205
  3. 0.9% SODIUM CHLORIDE INJECTION [Suspect]
     Active Substance: SODIUM CHLORIDE
     Indication: MEDICATION DILUTION
     Dosage: TARGETED COMBINATION CHEMOTHERAPY; CYCLOPHOSPHAMIDE 1100 MG+0.9% SODIUM CHLORIDE 100 ML; DAY1, Q21D
     Route: 041
     Dates: start: 20210205, end: 20210205
  4. TRASTUZUMAB. [Suspect]
     Active Substance: TRASTUZUMAB
     Indication: BREAST CANCER
     Dosage: TARGETED COMBINATION CHEMOTHERAPY; TRASTUZUMAB 600MG +0.9% SODIUM CHLORIDE 250 ML; Q21D, DAY 1
     Route: 041
     Dates: start: 20210205, end: 20210205
  5. 0.9% SODIUM CHLORIDE INJECTION [Suspect]
     Active Substance: SODIUM CHLORIDE
     Dosage: TARGETED COMBINATION CHEMOTHERAPY; PACLITAXEL(ALBUMIN BINDING TYPE)+0.9% SODIUM CHLORIDE; DAY1, Q21D
     Route: 041
     Dates: start: 20210205, end: 20210205
  6. PACLITAXEL. [Suspect]
     Active Substance: PACLITAXEL
     Indication: BREAST CANCER
     Dosage: TARGETED COMBINATION CHEMOTHERAPY; PACLITAXEL(ALBUMIN BINDING TYPE)+0.9% SODIUM CHLORIDE; DAY1, Q21D
     Route: 041
     Dates: start: 20210205, end: 20210205

REACTIONS (1)
  - Myelosuppression [Recovered/Resolved]

NARRATIVE: CASE EVENT DATE: 20210209
